FAERS Safety Report 18521772 (Version 4)
Quarter: 2021Q1

REPORT INFORMATION
  Report Type: Spontaneous
  Country: US (occurrence: US)
  Receive Date: 20201119
  Receipt Date: 20210303
  Transmission Date: 20210419
  Serious: No
  Sender: FDA-Public Use
  Company Number: US-SA-2020SA326457

PATIENT
  Age: 50 Year
  Sex: Female

DRUGS (2)
  1. DUPIXENT [Suspect]
     Active Substance: DUPILUMAB
     Indication: DERMATITIS ATOPIC
     Dosage: 600 MG, 1X
     Route: 058
     Dates: start: 202010, end: 202010
  2. DUPIXENT [Suspect]
     Active Substance: DUPILUMAB
     Dosage: 300 MG, QOW
     Route: 058
     Dates: start: 2020

REACTIONS (10)
  - Pharyngitis streptococcal [Unknown]
  - Adverse drug reaction [Unknown]
  - Nausea [Unknown]
  - Abdominal pain upper [Unknown]
  - Injection site erythema [Unknown]
  - Injection site rash [Unknown]
  - Injection site reaction [Unknown]
  - Injection site pruritus [Unknown]
  - Illness [Unknown]
  - Headache [Unknown]

NARRATIVE: CASE EVENT DATE: 2020
